FAERS Safety Report 21605198 (Version 2)
Quarter: 2022Q4

REPORT INFORMATION
  Report Type: Report from Study
  Country: US (occurrence: US)
  Receive Date: 20221116
  Receipt Date: 20221123
  Transmission Date: 20230112
  Serious: No
  Sender: FDA-Public Use
  Company Number: US-ABBVIE-4165265

PATIENT
  Sex: Female

DRUGS (2)
  1. HUMIRA [Suspect]
     Active Substance: ADALIMUMAB
     Indication: Rheumatoid arthritis
     Route: 058
  2. MODERNA COVID-19 VACCINE [Concomitant]
     Active Substance: ELASOMERAN
     Indication: COVID-19 immunisation
     Dosage: ONCE
     Route: 030

REACTIONS (9)
  - Rhinorrhoea [Recovered/Resolved]
  - Pruritus [Not Recovered/Not Resolved]
  - Headache [Recovering/Resolving]
  - Cough [Recovered/Resolved]
  - Pollakiuria [Not Recovered/Not Resolved]
  - Chest pain [Recovering/Resolving]
  - Nausea [Recovered/Resolved]
  - Musculoskeletal pain [Recovering/Resolving]
  - Back pain [Recovering/Resolving]
